FAERS Safety Report 10566876 (Version 1)
Quarter: 2014Q4

REPORT INFORMATION
  Report Type: Spontaneous
  Country: US (occurrence: US)
  Receive Date: 20141105
  Receipt Date: 20141105
  Transmission Date: 20150529
  Serious: No
  Sender: FDA-Public Use
  Company Number: US-009507513-1410USA015922

PATIENT
  Sex: Male

DRUGS (1)
  1. TEMODAR [Suspect]
     Active Substance: TEMOZOLOMIDE
     Indication: MALIGNANT MELANOMA
     Dosage: 1 CAPSULE DAILY AT BEDTIME FOR 6 WEEKS AND OFF FOR 2 WEEKS
     Route: 048
     Dates: end: 20141021

REACTIONS (1)
  - Drug ineffective [Not Recovered/Not Resolved]
